FAERS Safety Report 5070795-5 (Version None)
Quarter: 2006Q3

REPORT INFORMATION
  Report Type: 
  Country: None (occurrence: None)
  Receive Date: 20060804
  Receipt Date: 20060412
  Transmission Date: 20061208
  Serious: No
  Sender: FDA-Public Use
  Company Number: US-GLAXOSMITHKLINE-A0601517A

PATIENT
  Age: 49 Year
  Sex: Female

DRUGS (3)
  1. NICORETTE [Suspect]
     Dates: start: 20060405
  2. WELLBUTRIN SR [Concomitant]
  3. TRAZODONE HCL [Concomitant]

REACTIONS (2)
  - DRY MOUTH [None]
  - SLEEP DISORDER [None]
